FAERS Safety Report 5204285-3 (Version None)
Quarter: 2007Q1

REPORT INFORMATION
  Report Type: 
  Country: None (occurrence: None)
  Receive Date: 20070110
  Receipt Date: 20060201
  Transmission Date: 20070707
  Serious: No
  Sender: FDA-Public Use
  Company Number: US-BRISTOL-MYERS SQUIBB COMPANY-13268024

PATIENT
  Age: 55 Year
  Sex: Male

DRUGS (3)
  1. ABILIFY [Suspect]
     Dates: start: 20051201
  2. LEXAPRO [Concomitant]
  3. ACEBUTOLOL [Concomitant]

REACTIONS (3)
  - CARDIAC FLUTTER [None]
  - PALPITATIONS [None]
  - VENTRICULAR EXTRASYSTOLES [None]
